FAERS Safety Report 14280080 (Version 1)
Quarter: 2017Q4

REPORT INFORMATION
  Report Type: Report from Study
  Country: None (occurrence: FR)
  Receive Date: 20171213
  Receipt Date: 20171213
  Transmission Date: 20180321
  Serious: Yes (Other)
  Sender: FDA-Public Use
  Company Number: FR-ABBVIE-17K-056-2191188-00

PATIENT
  Age: 36 Year
  Sex: Female

DRUGS (4)
  1. LYSANXIA [Concomitant]
     Active Substance: PRAZEPAM
     Indication: PRODUCT USED FOR UNKNOWN INDICATION
     Dosage: ON THE EVENING
  2. SEROPLEX [Concomitant]
     Active Substance: ESCITALOPRAM OXALATE
     Indication: PRODUCT USED FOR UNKNOWN INDICATION
     Dosage: ON THE EVENING
  3. KETOPROFEN. [Concomitant]
     Active Substance: KETOPROFEN
     Indication: PRODUCT USED FOR UNKNOWN INDICATION
  4. HUMIRA [Suspect]
     Active Substance: ADALIMUMAB
     Indication: SPONDYLITIS
     Route: 058
     Dates: start: 20171121

REACTIONS (16)
  - Rhinorrhoea [Not Recovered/Not Resolved]
  - Injection site haematoma [Not Recovered/Not Resolved]
  - Discomfort [Unknown]
  - Fatigue [Not Recovered/Not Resolved]
  - Pyrexia [Unknown]
  - Headache [Unknown]
  - Asthmatic crisis [Not Recovered/Not Resolved]
  - Chills [Not Recovered/Not Resolved]
  - Pain [Not Recovered/Not Resolved]
  - Oropharyngeal pain [Not Recovered/Not Resolved]
  - Gastroenteritis [Unknown]
  - Arthralgia [Unknown]
  - Drug ineffective [Unknown]
  - Feeling cold [Unknown]
  - Vertigo [Unknown]
  - Injection site bruising [Unknown]

NARRATIVE: CASE EVENT DATE: 2017
